FAERS Safety Report 4763859-4 (Version None)
Quarter: 2005Q3

REPORT INFORMATION
  Report Type: 
  Country: None (occurrence: None)
  Receive Date: 20050908
  Receipt Date: 20050718
  Transmission Date: 20060218
  Serious: Yes (Death)
  Sender: FDA-Public Use
  Company Number: US-ABBOTT-05P-163-0305976-00

PATIENT
  Sex: Male

DRUGS (9)
  1. HUMIRA [Suspect]
     Indication: RHEUMATOID ARTHRITIS
     Route: 058
     Dates: start: 20050713, end: 20050713
  2. AMLODIPINE BESYLATE [Concomitant]
     Indication: BLOOD PRESSURE INCREASED
     Route: 048
  3. PREDNISONE TAB [Concomitant]
     Indication: RHEUMATOID ARTHRITIS
     Route: 048
  4. RISEDRONATE SODIUM [Concomitant]
     Indication: SPINAL COLUMN STENOSIS
     Route: 048
  5. DONEPEZIL HYDROCHLORIDE [Concomitant]
     Indication: DEMENTIA
     Route: 048
  6. METHOTREXATE [Concomitant]
     Indication: RHEUMATOID ARTHRITIS
     Route: 048
  7. DEXTROPROPOXYPHENE HYDROCHLORIDE [Concomitant]
     Indication: ARTHRALGIA
     Route: 048
  8. IBUPROFEN [Concomitant]
     Indication: ARTHRALGIA
     Route: 048
  9. NAMENDA [Concomitant]
     Indication: DEMENTIA ALZHEIMER'S TYPE
     Route: 048
     Dates: start: 20040101

REACTIONS (9)
  - ARTHRITIS INFECTIVE [None]
  - CONDITION AGGRAVATED [None]
  - CORONARY ARTERY OCCLUSION [None]
  - DEATH [None]
  - DECUBITUS ULCER [None]
  - DRUG INEFFECTIVE [None]
  - HYPERTENSION [None]
  - RHEUMATOID ARTHRITIS [None]
  - STAPHYLOCOCCAL INFECTION [None]
